FAERS Safety Report 17038728 (Version 1)
Quarter: 2019Q4

REPORT INFORMATION
  Report Type: Report from Study
  Country: MX (occurrence: MX)
  Receive Date: 20191115
  Receipt Date: 20191115
  Transmission Date: 20200122
  Serious: Yes (Hospitalization)
  Sender: FDA-Public Use
  Company Number: NVSC2019MX036525

PATIENT
  Sex: Male
  Weight: 75 kg

DRUGS (1)
  1. ENTRESTO [Suspect]
     Active Substance: SACUBITRIL\VALSARTAN
     Indication: SWELLING
     Dosage: 1 DF (50MG), BID
     Route: 048
     Dates: start: 201903

REACTIONS (2)
  - Product use in unapproved indication [Unknown]
  - Breast abscess [Unknown]
